FAERS Safety Report 15633772 (Version 3)
Quarter: 2018Q4

REPORT INFORMATION
  Report Type: Spontaneous
  Country: US (occurrence: US)
  Receive Date: 20181119
  Receipt Date: 20181228
  Transmission Date: 20190205
  Serious: Yes (Hospitalization, Other)
  Sender: FDA-Public Use
  Company Number: US-SA-2018SA314819

PATIENT
  Age: 75 Year
  Sex: Male

DRUGS (2)
  1. LOVENOX [Suspect]
     Active Substance: ENOXAPARIN SODIUM
     Indication: THROMBOSIS
  2. LOVENOX [Suspect]
     Active Substance: ENOXAPARIN SODIUM
     Indication: DEEP VEIN THROMBOSIS
     Dosage: UNK, UNK
     Route: 065

REACTIONS (9)
  - Product quality issue [Unknown]
  - Embolism [Unknown]
  - Headache [Unknown]
  - Haemorrhage [Unknown]
  - Chest pain [Unknown]
  - Injection site haemorrhage [Unknown]
  - Cerebral haemorrhage [Unknown]
  - Thrombosis [Unknown]
  - Arthritis [Unknown]

NARRATIVE: CASE EVENT DATE: 20180709
